FAERS Safety Report 21614608 (Version 4)
Quarter: 2023Q1

REPORT INFORMATION
  Report Type: Spontaneous
  Country: US (occurrence: US)
  Receive Date: 20221118
  Receipt Date: 20230214
  Transmission Date: 20230417
  Serious: Yes (Other)
  Sender: FDA-Public Use
  Company Number: US-PFIZER INC-PV202200105443

PATIENT
  Age: 60 Year
  Sex: Female

DRUGS (1)
  1. XELJANZ XR [Suspect]
     Active Substance: TOFACITINIB CITRATE
     Dosage: 11 MG
     Route: 048

REACTIONS (10)
  - Hernia [Unknown]
  - Cold sweat [Unknown]
  - Joint swelling [Unknown]
  - Peripheral swelling [Unknown]
  - Insomnia [Unknown]
  - Pain [Unknown]
  - Musculoskeletal stiffness [Unknown]
  - Headache [Unknown]
  - Photosensitivity reaction [Unknown]
  - Loss of personal independence in daily activities [Unknown]
